FAERS Safety Report 19847552 (Version 1)
Quarter: 2021Q3

REPORT INFORMATION
  Report Type: Spontaneous
  Country: DE (occurrence: DE)
  Receive Date: 20210917
  Receipt Date: 20210917
  Transmission Date: 20211014
  Serious: Yes (Hospitalization)
  Sender: FDA-Public Use
  Company Number: DE-TEVA-2021-DE-1951971

PATIENT
  Age: 89 Year
  Sex: Female
  Weight: 62 kg

DRUGS (9)
  1. CHLORTALIDON [Suspect]
     Active Substance: CHLORTHALIDONE
     Dosage: .5 DOSAGE FORMS DAILY; 25 MG, 0?0?0.5?0
  2. AMLODIPIN [Concomitant]
     Active Substance: AMLODIPINE BESYLATE
     Dosage: .5 DOSAGE FORMS DAILY; 10 MG, 0?0?0.5?0
  3. CRATAEGUS [Concomitant]
     Active Substance: HAWTHORN LEAF WITH FLOWER
     Dosage: 900 MILLIGRAM DAILY;  1?0?1?0
  4. COLECALCIFEROL (VITAMIN D) [Concomitant]
     Active Substance: CHOLECALCIFEROL
     Dosage: 5 DOSAGE FORMS DAILY; 5 DROPS, 5?0?0?0
  5. ACETYLSALICYLSAURE [Concomitant]
     Active Substance: ASPIRIN
     Dosage: 100 MILLIGRAM DAILY;  1?0?0?0
  6. SIMVASTATIN. [Concomitant]
     Active Substance: SIMVASTATIN
     Dosage: 20 MILLIGRAM DAILY;  0?0?1?0
  7. MAGNESIUM [Concomitant]
     Active Substance: MAGNESIUM
     Dosage: 2 DOSAGE FORMS DAILY; 1?0?1?0
  8. KALIUMIODID/LEVOTHYROXIN?NATRIUM [Concomitant]
     Dosage: 100 MICROGRAM DAILY;  1?0?0?0
  9. DEXAMETHASON [Suspect]
     Active Substance: DEXAMETHASONE
     Dosage: 4 MG, SCHEME

REACTIONS (8)
  - Systemic infection [Unknown]
  - Abdominal pain upper [Unknown]
  - Hyponatraemia [Unknown]
  - Abdominal distension [Unknown]
  - Condition aggravated [Unknown]
  - Renal impairment [Unknown]
  - General physical health deterioration [Unknown]
  - Nausea [Unknown]
